FAERS Safety Report 10766033 (Version 1)
Quarter: 2015Q1

REPORT INFORMATION
  Report Type: Spontaneous
  Country: US (occurrence: US)
  Receive Date: 20150205
  Receipt Date: 20150205
  Transmission Date: 20150721
  Serious: No
  Sender: FDA-Public Use
  Company Number: US-ELI_LILLY_AND_COMPANY-US201409008170

PATIENT
  Sex: Male

DRUGS (2)
  1. HUMATROPE [Suspect]
     Active Substance: SOMATROPIN
     Dosage: 1.7 MG, QD
     Route: 065
     Dates: start: 201412
  2. HUMATROPE [Suspect]
     Active Substance: SOMATROPIN
     Indication: GROWTH HORMONE DEFICIENCY
     Dosage: 1.6 MG, QD
     Route: 065
     Dates: start: 20140907

REACTIONS (3)
  - Injection site pain [Unknown]
  - Drug dose omission [Unknown]
  - Injection site bruising [Unknown]
